FAERS Safety Report 9485727 (Version 1)
Quarter: 2013Q3

REPORT INFORMATION
  Report Type: Spontaneous
  Country: US (occurrence: None)
  Receive Date: 20130821
  Receipt Date: 20130821
  Transmission Date: 20140515
  Serious: Yes (Other)
  Sender: FDA-Public Use
  Company Number: ADR-2013-01387

PATIENT
  Age: 43 Year
  Sex: Female

DRUGS (1)
  1. BACLOFEN [Suspect]
     Indication: MUSCLE SPASTICITY

REACTIONS (7)
  - Hypotonia [None]
  - Fall [None]
  - Device failure [None]
  - Device alarm issue [None]
  - Muscular weakness [None]
  - Wheelchair user [None]
  - Ill-defined disorder [None]
